FAERS Safety Report 17130211 (Version 2)
Quarter: 2019Q4

REPORT INFORMATION
  Report Type: Spontaneous
  Country: US (occurrence: US)
  Receive Date: 20191209
  Receipt Date: 20191227
  Transmission Date: 20200122
  Serious: Yes (Death, Other)
  Sender: FDA-Public Use
  Company Number: US-MAYNE PHARMA-2019MYN000846

PATIENT

DRUGS (25)
  1. HYDRALAZINE [Concomitant]
     Active Substance: HYDRALAZINE HYDROCHLORIDE
     Indication: PRODUCT USED FOR UNKNOWN INDICATION
  2. VALTREX [Concomitant]
     Active Substance: VALACYCLOVIR HYDROCHLORIDE
  3. TRADJENTA [Concomitant]
     Active Substance: LINAGLIPTIN
  4. LASIX [Concomitant]
     Active Substance: FUROSEMIDE
     Indication: PRODUCT USED FOR UNKNOWN INDICATION
  5. ATOVAQUONE. [Concomitant]
     Active Substance: ATOVAQUONE
     Indication: PRODUCT USED FOR UNKNOWN INDICATION
  6. SYNTHROID [Concomitant]
     Active Substance: LEVOTHYROXINE SODIUM
  7. METOPROLOL                         /00376902/ [Concomitant]
     Active Substance: METOPROLOL TARTRATE
  8. CRESTOR [Concomitant]
     Active Substance: ROSUVASTATIN CALCIUM
  9. CYCLOSPORINE. [Concomitant]
     Active Substance: CYCLOSPORINE
  10. VITAMIN D3 [Concomitant]
     Active Substance: CHOLECALCIFEROL
  11. KEYTRUDA [Concomitant]
     Active Substance: PEMBROLIZUMAB
     Indication: MALIGNANT MELANOMA
     Route: 065
  12. PREDNISONE                         /00044702/ [Concomitant]
     Active Substance: PREDNISONE
     Indication: PRODUCT USED FOR UNKNOWN INDICATION
  13. ACETYLSALICYLIC ACID [Concomitant]
     Active Substance: ASPIRIN
  14. ZITHROMAX [Concomitant]
     Active Substance: AZITHROMYCIN DIHYDRATE
  15. FISH OIL                           /00492901/ [Concomitant]
     Active Substance: COD LIVER OIL
  16. ASCORBIC ACID. [Concomitant]
     Active Substance: ASCORBIC ACID
  17. NORVASC [Concomitant]
     Active Substance: AMLODIPINE BESYLATE
     Indication: PRODUCT USED FOR UNKNOWN INDICATION
  18. ALLOPURINOL. [Concomitant]
     Active Substance: ALLOPURINOL
  19. LOPID [Concomitant]
     Active Substance: GEMFIBROZIL
  20. MULTIVITAMINS                      /00116001/ [Concomitant]
     Active Substance: VITAMINS
  21. ATROVENT [Concomitant]
     Active Substance: IPRATROPIUM BROMIDE
  22. TOLSURA [Suspect]
     Active Substance: ITRACONAZOLE
     Indication: PRODUCT USED FOR UNKNOWN INDICATION
     Dosage: 130 MG, QD
     Route: 048
     Dates: start: 20190916, end: 20190923
  23. PROGRAF [Concomitant]
     Active Substance: TACROLIMUS
  24. CALCIUM CARBONATE PCH [Concomitant]
  25. PEPCID [Concomitant]
     Active Substance: FAMOTIDINE

REACTIONS (3)
  - Multiple organ dysfunction syndrome [Unknown]
  - Organising pneumonia [Fatal]
  - Transplant rejection [Fatal]

NARRATIVE: CASE EVENT DATE: 20190924
